FAERS Safety Report 22641353 (Version 1)
Quarter: 2023Q2

REPORT INFORMATION
  Report Type: Spontaneous
  Country: GB (occurrence: GB)
  Receive Date: 20230626
  Receipt Date: 20230626
  Transmission Date: 20230722
  Serious: Yes (Hospitalization, Other)
  Sender: FDA-Public Use
  Company Number: GB-002147023-NVSC2023GB141444

PATIENT
  Age: 28 Year
  Sex: Female

DRUGS (1)
  1. FINGOLIMOD [Suspect]
     Active Substance: FINGOLIMOD
     Indication: Relapsing-remitting multiple sclerosis
     Dosage: UNK (LOCALLY)
     Route: 065
     Dates: start: 2017

REACTIONS (2)
  - Central nervous system lesion [Unknown]
  - Paralysis [Unknown]

NARRATIVE: CASE EVENT DATE: 20180101
